FAERS Safety Report 4313859-3 (Version None)
Quarter: 2004Q1

REPORT INFORMATION
  Report Type: 
  Country: None (occurrence: None)
  Receive Date: 20040305
  Receipt Date: 20040225
  Transmission Date: 20041129
  Serious: Yes (Death)
  Sender: FDA-Public Use
  Company Number: 2004SE01034

PATIENT
  Age: 79 Year
  Sex: Male

DRUGS (8)
  1. OMEPRAZOLE [Suspect]
     Indication: DYSPEPSIA
  2. MOXIFLOXACIN HCL [Suspect]
     Indication: RESPIRATORY TRACT INFECTION
  3. ALBUTEROL [Suspect]
     Indication: CHRONIC OBSTRUCTIVE AIRWAYS DISEASE
  4. THEOPHYLLINE [Suspect]
     Indication: CHRONIC OBSTRUCTIVE AIRWAYS DISEASE
     Dosage: 400 MG DAILY
  5. FUROSEMIDE [Suspect]
     Indication: CARDIAC FAILURE
  6. POTASSIUM SUPPLEMENT (NOS) [Suspect]
  7. WARFARIN SODIUM [Suspect]
     Indication: ATRIAL FIBRILLATION
  8. DIGOXIN [Suspect]
     Indication: CARDIAC FAILURE

REACTIONS (2)
  - RESPIRATORY FAILURE [None]
  - STATUS EPILEPTICUS [None]
